FAERS Safety Report 14472704 (Version 12)
Quarter: 2018Q4

REPORT INFORMATION
  Report Type: Report from Study
  Country: JP (occurrence: JP)
  Receive Date: 20180201
  Receipt Date: 20181207
  Transmission Date: 20190204
  Serious: Yes (Hospitalization, Other)
  Sender: FDA-Public Use
  Company Number: JP-ROCHE-2051779

PATIENT
  Age: 78 Year
  Sex: Male

DRUGS (60)
  1. AIMIX [Concomitant]
     Active Substance: AMLODIPINE BESYLATE\IRBESARTAN
     Indication: HYPERTENSION
     Route: 048
  2. PIOGLITAZONE. [Concomitant]
     Active Substance: PIOGLITAZONE
     Indication: DIABETES MELLITUS
     Route: 048
  3. BAYASPIRIN [Concomitant]
     Active Substance: ASPIRIN
     Indication: ANGINA PECTORIS
     Route: 048
  4. INOVAN (JAPAN) [Concomitant]
     Route: 042
     Dates: start: 20180108, end: 20180109
  5. SERENACE [Concomitant]
     Active Substance: HALOPERIDOL
     Route: 042
     Dates: start: 20180125, end: 20180125
  6. HEPARIN SODIUM. [Concomitant]
     Active Substance: HEPARIN SODIUM
     Indication: ANGINA PECTORIS
  7. DOPAMINE HYDROCHLORIDE. [Concomitant]
     Active Substance: DOPAMINE HYDROCHLORIDE
     Route: 042
     Dates: start: 20180109, end: 20180112
  8. LULLAN [Concomitant]
     Active Substance: PEROSPIRONE HYDROCHLORIDE
     Route: 048
     Dates: start: 20180111, end: 20180203
  9. ATEZOLIZUMAB. [Suspect]
     Active Substance: ATEZOLIZUMAB
     Indication: TRANSITIONAL CELL CARCINOMA
     Dosage: DATE OF MOST RECENT DOSE OF ATEZOLIZUMAB PRIOR TO EVENT ONSET 25/DEC/2017
     Route: 042
     Dates: start: 20171225
  10. SERENACE [Concomitant]
     Active Substance: HALOPERIDOL
     Indication: DELIRIUM
     Route: 042
     Dates: start: 20180109, end: 20180121
  11. NEOAMIYU [Concomitant]
     Active Substance: AMINO ACIDS
     Route: 042
     Dates: start: 20180115, end: 20180126
  12. KENEI G [Concomitant]
     Active Substance: GLYCERIN
     Route: 054
     Dates: start: 20171228, end: 20171228
  13. GASCON [Concomitant]
     Active Substance: DIMETHICONE
     Route: 048
     Dates: start: 20180122, end: 20180123
  14. DIAZEPAM. [Concomitant]
     Active Substance: DIAZEPAM
     Route: 042
     Dates: start: 20180125, end: 20180125
  15. GEMCITABINE [Suspect]
     Active Substance: GEMCITABINE\GEMCITABINE HYDROCHLORIDE
     Indication: TRANSITIONAL CELL CARCINOMA
     Dosage: MOST RECENT DOSE PRIOR TO EVENT ONSET: 25/DEC/2017,
     Route: 042
     Dates: start: 20171225
  16. PLETAAL [Concomitant]
     Active Substance: CILOSTAZOL
     Indication: PERIPHERAL ARTERIAL OCCLUSIVE DISEASE
     Route: 048
     Dates: start: 20180108
  17. CRESTOR [Concomitant]
     Active Substance: ROSUVASTATIN CALCIUM
     Indication: HYPERLIPIDAEMIA
     Route: 048
  18. TAMIFLU [Concomitant]
     Active Substance: OSELTAMIVIR PHOSPHATE
     Route: 048
     Dates: start: 20171225, end: 20180103
  19. ROZEREM [Concomitant]
     Active Substance: RAMELTEON
     Route: 048
     Dates: start: 20180110, end: 20180315
  20. NEW LECICARBON [Concomitant]
     Active Substance: SODIUM BICARBONATE\SODIUM PHOSPHATE, MONOBASIC
     Route: 054
     Dates: start: 20180119, end: 20180119
  21. CARBOPLATIN. [Suspect]
     Active Substance: CARBOPLATIN
     Indication: TRANSITIONAL CELL CARCINOMA
     Dosage: AREA UNDER THE CONCENTRATION-TIME CURVE (AUC) OF 4.5 MILLIGRAM PER MILLILITER INTO MINUTE (4.5MG/ML/
     Route: 042
     Dates: start: 20171225
  22. TAKECAB [Concomitant]
     Active Substance: VONOPRAZAN FUMURATE
     Route: 048
  23. VEEN-D [Concomitant]
     Active Substance: DEXTROSE
     Route: 042
     Dates: start: 20180115, end: 20180131
  24. ISOSORBIDE DINITRATE. [Concomitant]
     Active Substance: ISOSORBIDE DINITRATE
     Indication: ACUTE MYOCARDIAL INFARCTION
     Route: 062
     Dates: start: 20180115, end: 20180202
  25. GASCON [Concomitant]
     Active Substance: DIMETHICONE
     Route: 048
     Dates: start: 20180119, end: 20180119
  26. LULLAN [Concomitant]
     Active Substance: PEROSPIRONE HYDROCHLORIDE
     Indication: DELIRIUM
     Route: 048
     Dates: start: 20180110, end: 20180110
  27. TRANSAMIN [Concomitant]
     Active Substance: TRANEXAMIC ACID
     Indication: ILEAL ULCER
     Route: 042
     Dates: start: 20180121, end: 20180131
  28. FLUMAZENIL. [Concomitant]
     Active Substance: FLUMAZENIL
     Route: 042
     Dates: start: 20180125, end: 20180125
  29. EURAX [Concomitant]
     Active Substance: CROTAMITON
     Indication: PROPHYLAXIS
     Route: 061
     Dates: start: 20180317
  30. GLIMEPIRIDE. [Concomitant]
     Active Substance: GLIMEPIRIDE
     Indication: DIABETES MELLITUS
     Route: 048
  31. LYRICA [Concomitant]
     Active Substance: PREGABALIN
     Route: 048
     Dates: start: 20180108
  32. GLUCOSE OTSUKA [Concomitant]
     Route: 042
     Dates: start: 20180109, end: 20180115
  33. NAFAMOSTAT MESILATE [Concomitant]
     Active Substance: NAFAMOSTAT MESYLATE
     Route: 042
     Dates: start: 20180109, end: 20180115
  34. MIDAZOLAM [Concomitant]
     Active Substance: MIDAZOLAM HYDROCHLORIDE
     Route: 042
     Dates: start: 20180125, end: 20180125
  35. SENNOSIDE [Concomitant]
     Active Substance: SENNOSIDES
     Route: 048
     Dates: start: 20171129, end: 20180302
  36. METOCLOPRAMIDE. [Concomitant]
     Active Substance: METOCLOPRAMIDE
     Indication: PROPHYLAXIS OF NAUSEA AND VOMITING
     Route: 048
     Dates: start: 20171226, end: 20171229
  37. ISOSORBIDE DINITRATE. [Concomitant]
     Active Substance: ISOSORBIDE DINITRATE
     Route: 062
     Dates: start: 20180203
  38. ADONA (JAPAN) [Concomitant]
     Indication: ILEAL ULCER
     Route: 042
     Dates: start: 20180121, end: 20180131
  39. KETOCONAZOLE. [Concomitant]
     Active Substance: KETOCONAZOLE
     Dosage: LOTION
     Route: 065
  40. GLACTIV [Concomitant]
     Active Substance: SITAGLIPTIN
     Indication: DIABETES MELLITUS
     Route: 048
  41. VITAMEDIN (JAPAN) [Concomitant]
     Route: 042
     Dates: start: 20180115, end: 20180126
  42. HEPARIN SODIUM. [Concomitant]
     Active Substance: HEPARIN SODIUM
     Indication: PERIPHERAL ARTERIAL OCCLUSIVE DISEASE
     Route: 042
     Dates: start: 20180108, end: 20180118
  43. SODIUM 1, 4-DIMETHYL-7-ISOPROPYLAZULENE-3-SULFONATE [Concomitant]
     Route: 042
     Dates: start: 20180110, end: 20180112
  44. FEBURIC [Concomitant]
     Active Substance: FEBUXOSTAT
     Indication: HYPERURICAEMIA
     Route: 048
     Dates: start: 2017
  45. NICORANDIL [Concomitant]
     Active Substance: NICORANDIL
     Indication: ANGINA PECTORIS
     Route: 048
     Dates: start: 20180116
  46. SODIUM CHLORIDE. [Concomitant]
     Active Substance: SODIUM CHLORIDE
     Route: 042
     Dates: start: 20180108, end: 20180109
  47. SOLACET F [Concomitant]
     Route: 042
     Dates: start: 20180113, end: 20180114
  48. MAGNESIUM OXIDE. [Concomitant]
     Active Substance: MAGNESIUM OXIDE
     Route: 048
     Dates: start: 20171224
  49. MAGCOROL (JAPAN) [Concomitant]
     Route: 048
     Dates: start: 20180118, end: 20180118
  50. SODIUM PICOSULFATE [Concomitant]
     Active Substance: SODIUM PICOSULFATE
     Route: 048
     Dates: start: 20180118, end: 20180118
  51. PEROSPIRONE HCL [Concomitant]
     Active Substance: PEROSPIRONE HYDROCHLORIDE
     Indication: PROPHYLAXIS
     Route: 048
     Dates: start: 20180204, end: 20180301
  52. NATRIX [Concomitant]
     Active Substance: INDAPAMIDE
     Indication: HYPERTENSION
     Route: 048
  53. DAIPHEN [Concomitant]
     Active Substance: SULFAMETHOXAZOLE\TRIMETHOPRIM
     Route: 048
     Dates: start: 20180106, end: 20180303
  54. ROCAIN (JAPAN) [Concomitant]
     Route: 058
     Dates: start: 20180108, end: 20180109
  55. MIDAZOLAM [Concomitant]
     Active Substance: MIDAZOLAM HYDROCHLORIDE
     Indication: DELIRIUM
     Route: 042
     Dates: start: 20180115, end: 20180115
  56. ELEJECT [Concomitant]
     Route: 042
     Dates: start: 20180115, end: 20180126
  57. DECADRON [Concomitant]
     Active Substance: DEXAMETHASONE
     Indication: PREMEDICATION
     Route: 048
     Dates: start: 20171226, end: 20171229
  58. WHITE PETROLATUM [Concomitant]
     Active Substance: PETROLATUM
     Route: 061
     Dates: start: 20180109, end: 20180204
  59. SODIUM PICOSULFATE [Concomitant]
     Active Substance: SODIUM PICOSULFATE
     Route: 048
     Dates: start: 20180122, end: 20180122
  60. LUNESTA [Concomitant]
     Active Substance: ESZOPICLONE
     Route: 048
     Dates: start: 20180129

REACTIONS (8)
  - Pneumonia [Recovered/Resolved]
  - Acute kidney injury [Recovered/Resolved]
  - Hyperglycaemia [Recovered/Resolved]
  - Platelet count decreased [Recovered/Resolved]
  - Ileal ulcer [Recovered/Resolved]
  - Pyrexia [Recovered/Resolved]
  - Hepatic function abnormal [Recovered/Resolved]
  - Acute myocardial infarction [Recovered/Resolved]

NARRATIVE: CASE EVENT DATE: 20180103
